FAERS Safety Report 5230281-6 (Version None)
Quarter: 2007Q1

REPORT INFORMATION
  Report Type: 
  Country: None (occurrence: None)
  Receive Date: 20070201
  Receipt Date: 20070127
  Transmission Date: 20070707
  Serious: Yes (Other)
  Sender: FDA-Public Use
  Company Number: 229943

PATIENT
  Age: 61 Year
  Sex: Female
  Weight: 60 kg

DRUGS (2)
  1. HERCEPTIN [Suspect]
     Indication: BREAST CANCER METASTATIC
     Dosage: 6 MG/KG/INTRAVENOUS
     Route: 042
     Dates: start: 20050401
  2. XELODA [Concomitant]

REACTIONS (4)
  - BIOPSY PERICARDIUM ABNORMAL [None]
  - CARDIAC TAMPONADE [None]
  - HYPERPLASIA [None]
  - PERICARDITIS [None]
